FAERS Safety Report 21175186 (Version 2)
Quarter: 2022Q3

REPORT INFORMATION
  Report Type: Spontaneous
  Country: RO (occurrence: RO)
  Receive Date: 20220805
  Receipt Date: 20220823
  Transmission Date: 20221026
  Serious: Yes (Death, Life-Threatening, Hospitalization, Other)
  Sender: FDA-Public Use
  Company Number: RO-BAUSCH-BL-2022-019308

PATIENT
  Age: 66 Year
  Sex: Female
  Weight: 78 kg

DRUGS (25)
  1. RIFAXIMIN [Suspect]
     Active Substance: RIFAXIMIN
     Indication: Product used for unknown indication
     Dosage: 3 DOSAGE FORM IN 12 HOUR, (3 DF/125 HOURS)
     Route: 048
     Dates: start: 20170203, end: 20170226
  2. DEXAMETHASONE [Suspect]
     Active Substance: DEXAMETHASONE
     Indication: B precursor type acute leukaemia
     Dosage: (5 DOSAGE FORM)CYCLICAL, 5 VIALS PER DAY, HYPER-C VAD/MTX/ARA C
     Route: 042
     Dates: start: 20170113, end: 20170116
  3. DEXAMETHASONE [Suspect]
     Active Substance: DEXAMETHASONE
     Dosage: (5 DOSAGE FORM)CYCLICAL, HYPER-C VAD/MTX/ARA C
     Route: 042
     Dates: start: 20170123, end: 20170126
  4. AMPICILLIN [Suspect]
     Active Substance: AMPICILLIN
     Indication: Urinary tract infection enterococcal
     Dosage: 2 DOSAGE FORM IN 1 DAY, VIAL OF 1 GRAM AT A DOSING OF 2X2 G/DAY, (2 DF/24 HOURS)
     Route: 042
     Dates: start: 20170203, end: 20170211
  5. AMPICILLIN [Suspect]
     Active Substance: AMPICILLIN
     Indication: Enterococcal infection
  6. METHOTREXATE [Suspect]
     Active Substance: METHOTREXATE
     Indication: B precursor type acute leukaemia
     Dosage: 15 MILLIGRAM(S))CYCLICAL, VIALS OF 5 G, 15 MG, CYCLICAL (15 MG,2 CYCLICAL)
     Route: 037
     Dates: start: 20170130, end: 20170130
  7. METHOTREXATE [Suspect]
     Active Substance: METHOTREXATE
     Dosage: VIALS OF 5 G 1375 MG I.V. IN A 22 HOURS PERFUSION, IN 03/FEB/2017
     Route: 042
     Dates: start: 20170203, end: 20170203
  8. METHOTREXATE [Suspect]
     Active Substance: METHOTREXATE
     Dosage: 345 MILLIGRAM(S))CYCLICAL,  VIALS OF 5 G, 345 MG, I.V. DURING 2 HOURS (345 MG)
     Route: 042
     Dates: start: 20170203, end: 20170203
  9. METHYLPREDNISOLONE [Suspect]
     Active Substance: METHYLPREDNISOLONE
     Indication: Product used for unknown indication
     Dosage: (50 MILLIGRAM(S)) IN 12 HOUR,  VIALS OF 500 MG, 50 MG AT 12 HOURS INTERVAL,
     Route: 042
     Dates: end: 20170205
  10. VINCRISTINE [Suspect]
     Active Substance: VINCRISTINE
     Indication: B precursor type acute leukaemia
     Dosage: (2 DOSAGE FORM)CYCLICAL, CYCLICAL (2 DOSAGE FORMS,2 CYCLICAL), HYPER-C VAD/MTX/ARA-C PROTOCOL
     Route: 042
     Dates: start: 20170115, end: 201701
  11. VINCRISTINE [Suspect]
     Active Substance: VINCRISTINE
     Dosage: (2 DOSAGE FORM)CYCLICAL, HYPER-C VAD/MTX/ARA-C PROTOCOL
     Route: 042
     Dates: start: 201701, end: 20170123
  12. CYTARABINE [Suspect]
     Active Substance: CYTARABINE
     Indication: B precursor type acute leukaemia
     Dosage: VIALS OF 1 G, 25 MG; CYCLICAL (25 MG,2 CYCLICAL)
     Route: 037
     Dates: start: 20170130
  13. CYTARABINE [Suspect]
     Active Substance: CYTARABINE
     Dosage: (25 MILLIGRAM, 2 CYCLICAL, VIALS OF 2 G, 2X2 GRAMS/DAY,PERFUSIONS OF 2 HOURS, AT 12 HOURS INTERVAL
     Route: 042
     Dates: start: 20170204, end: 20170205
  14. LINEZOLID [Suspect]
     Active Substance: LINEZOLID
     Indication: Urinary tract infection enterococcal
     Dosage: (1 DOSAGE FORM) IN 12 HOUR, VIALS OF 600 MG AT A DOSING OF 2X1 VIALS/DAY, (1 DF/12 HOURS)
     Route: 042
     Dates: start: 20170212, end: 20170226
  15. LINEZOLID [Suspect]
     Active Substance: LINEZOLID
     Indication: Urinary tract infection enterococcal
  16. DOXORUBICIN [Suspect]
     Active Substance: DOXORUBICIN
     Indication: B precursor type acute leukaemia
     Dosage: VIALS OF 50 MG,CYCLICAL (80 MG, 2 CYCLICAL),HYPER-C VAD/MTX/ARA-C PROTOCOL
     Route: 042
     Dates: start: 20170116
  17. IMIPENEM [Suspect]
     Active Substance: IMIPENEM
     Indication: Enterococcal infection
     Dosage: (1 DOSAGE FORM) IN 6 HOUR, VIALS OF 0.5 G, AT A DOSING OF 4X1 VIALS/DAY
     Route: 042
     Dates: start: 20170213, end: 20170226
  18. IMIPENEM [Suspect]
     Active Substance: IMIPENEM
     Indication: Urinary tract infection
  19. MEROPENEM [Suspect]
     Active Substance: MEROPENEM
     Indication: Urinary tract infection enterococcal
     Dosage: 1 DOSAGE FORM) IN 8 HOUR, VIALS OF 1 G, AT A DOSING OF 3 X1G/DAY
     Route: 042
     Dates: start: 20170212
  20. MEROPENEM [Suspect]
     Active Substance: MEROPENEM
     Indication: Enterococcal infection
  21. CYCLOPHOSPHAMIDE [Suspect]
     Active Substance: CYCLOPHOSPHAMIDE
     Indication: B precursor type acute leukaemia
     Dosage: VIALS OF 200 MG, 340 MG/DOSE, 2 DOSES/DAY, 680 MG,2 CYCLICAL)
     Route: 042
     Dates: start: 20170113, end: 20170115
  22. SULFAMETHOXAZOLE\TRIMETHOPRIM [Suspect]
     Active Substance: SULFAMETHOXAZOLE\TRIMETHOPRIM
     Indication: Product used for unknown indication
     Dosage: 2X2 TABLETS/DAY, ORALLY, ON 5, 7, 9, 11, 13FEB2017, (4 DF/ 2 DAYS) AND STRENGTH (400/80 MG)
     Route: 048
     Dates: start: 20170205, end: 20170213
  23. VANCOMYCIN [Suspect]
     Active Substance: VANCOMYCIN
     Indication: Clostridium colitis
     Route: 048
  24. DALTEPARIN [Suspect]
     Active Substance: DALTEPARIN
     Indication: Prophylaxis
     Dosage: (5000 INTERNATIONAL UNIT(S)) IN 1 DAY, WHEN THE NUMBER OF PLATELETS INCREASED OVER 30,000/ MM3.
     Route: 058
  25. DEXAMETHASONE [Concomitant]
     Active Substance: DEXAMETHASONE
     Indication: Product used for unknown indication
     Dosage: 1 DROP(S) ) IN 1HOUR
     Route: 031
     Dates: start: 20170204, end: 20170207

REACTIONS (5)
  - Acute hepatic failure [Fatal]
  - Hepatic infarction [Fatal]
  - Hepatotoxicity [Not Recovered/Not Resolved]
  - Aplasia [Recovering/Resolving]
  - Clostridium difficile colitis [Recovered/Resolved]

NARRATIVE: CASE EVENT DATE: 20170101
